FAERS Safety Report 4971430-4 (Version None)
Quarter: 2006Q2

REPORT INFORMATION
  Report Type: 
  Country: None (occurrence: None)
  Receive Date: 20060413
  Receipt Date: 20060403
  Transmission Date: 20061013
  Serious: Yes (Hospitalization)
  Sender: FDA-Public Use
  Company Number: US-JNJFOC-20060205897

PATIENT
  Sex: Female
  Weight: 102.06 kg

DRUGS (10)
  1. REMICADE [Suspect]
     Route: 042
  2. REMICADE [Suspect]
     Route: 042
  3. REMICADE [Suspect]
     Route: 042
  4. REMICADE [Suspect]
     Indication: RHEUMATOID ARTHRITIS
     Route: 042
  5. PREDNISONE [Concomitant]
     Indication: RHEUMATOID ARTHRITIS
     Route: 048
  6. METHOTREXATE [Concomitant]
     Indication: RHEUMATOID ARTHRITIS
     Route: 048
  7. PREVACID [Concomitant]
     Dosage: DOSE 25/50MG DAILY
  8. DYAZIDE [Concomitant]
  9. DYAZIDE [Concomitant]
     Indication: HYPERTENSION
  10. NIFEDIPINE [Concomitant]
     Indication: HYPERTENSION

REACTIONS (1)
  - PNEUMOCYSTIS JIROVECI PNEUMONIA [None]
